FAERS Safety Report 25871350 (Version 1)
Quarter: 2025Q4

REPORT INFORMATION
  Report Type: Report from Study
  Country: US (occurrence: US)
  Receive Date: 20251001
  Receipt Date: 20251001
  Transmission Date: 20260118
  Serious: Yes (Other)
  Sender: TEVA
  Company Number: US-TEVA-VS-3377461

PATIENT
  Age: 60 Year
  Sex: Female

DRUGS (1)
  1. AUSTEDO XR [Suspect]
     Active Substance: DEUTETRABENAZINE
     Indication: Tardive dyskinesia
     Dosage: QDAY
     Route: 048
     Dates: start: 20241002, end: 20250408

REACTIONS (2)
  - Bipolar I disorder [Unknown]
  - Mood swings [Recovering/Resolving]
